FAERS Safety Report 26024973 (Version 1)
Quarter: 2025Q4

REPORT INFORMATION
  Report Type: Spontaneous
  Country: US (occurrence: US)
  Receive Date: 20251111
  Receipt Date: 20251111
  Transmission Date: 20260118
  Serious: No
  Sender: ALKEM
  Company Number: US-ALKEM LABORATORIES LIMITED-US-ALKEM-2025-10294

PATIENT
  Sex: Female

DRUGS (6)
  1. APREMILAST [Suspect]
     Active Substance: APREMILAST
     Indication: Alopecia scarring
     Dosage: 10 MILLIGRAM (ON DAY 1)
     Route: 048
  2. APREMILAST [Suspect]
     Active Substance: APREMILAST
     Dosage: 10 MILLIGRAM, BID (ON DAY 2)
     Route: 048
  3. APREMILAST [Suspect]
     Active Substance: APREMILAST
     Dosage: UNK, BID (10 MILLIGRAM IN THE MORNING AND 20 MILLIGRAM IN THE EVENING, ON DAY 3)
     Route: 048
  4. APREMILAST [Suspect]
     Active Substance: APREMILAST
     Dosage: 20 MILLIGRAM, BID (ON DAY 4)
     Route: 048
  5. APREMILAST [Suspect]
     Active Substance: APREMILAST
     Dosage: UNK, BID (20 MILLIGRAM IN THE MORNING AND 30 MILLIGRAM IN THE EVENING, ON DAY 5)
     Route: 048
  6. APREMILAST [Suspect]
     Active Substance: APREMILAST
     Dosage: 30 MILLIGRAM, BID
     Route: 048

REACTIONS (2)
  - Abdominal discomfort [Unknown]
  - Diarrhoea [Unknown]
